FAERS Safety Report 21310188 (Version 1)
Quarter: 2022Q3

REPORT INFORMATION
  Report Type: Report from Study
  Country: GB (occurrence: GB)
  Receive Date: 20220909
  Receipt Date: 20220909
  Transmission Date: 20221026
  Serious: Yes (Other)
  Sender: FDA-Public Use
  Company Number: GB-UCBSA-2022052491

PATIENT

DRUGS (1)
  1. BRIVARACETAM [Suspect]
     Active Substance: BRIVARACETAM
     Indication: Partial seizures
     Dosage: STARTING UP-TITRATED DOSE OF  100 MG

REACTIONS (21)
  - Suicidal ideation [Unknown]
  - Intentional self-injury [Unknown]
  - Intellectual disability [Unknown]
  - Seizure [Unknown]
  - Drug ineffective [Unknown]
  - Depressed mood [Unknown]
  - Aggression [Unknown]
  - Fatigue [Unknown]
  - Balance disorder [Unknown]
  - Anxiety [Unknown]
  - Cognitive disorder [Unknown]
  - Irritability [Unknown]
  - Nausea [Unknown]
  - Decreased appetite [Unknown]
  - Rash [Unknown]
  - Headache [Unknown]
  - Tremor [Unknown]
  - Insomnia [Unknown]
  - Psychotic disorder [Unknown]
  - Adverse drug reaction [Unknown]
  - Mental disorder [Unknown]
